FAERS Safety Report 10896189 (Version 1)
Quarter: 2015Q1

REPORT INFORMATION
  Report Type: Spontaneous
  Country: GB (occurrence: GB)
  Receive Date: 20150309
  Receipt Date: 20150309
  Transmission Date: 20150721
  Serious: Yes (Other)
  Sender: FDA-Public Use
  Company Number: GB-ORION CORPORATION ORION PHARMA-ENT 2015-0041

PATIENT
  Age: 58 Year
  Sex: Male

DRUGS (3)
  1. ENTACAPONE ORION [Suspect]
     Active Substance: ENTACAPONE
     Indication: PARKINSON^S DISEASE
     Route: 048
  2. ENTACAPONE ORION [Suspect]
     Active Substance: ENTACAPONE
     Route: 048
  3. DUODOPA [Suspect]
     Active Substance: CARBIDOPA\LEVODOPA
     Indication: PARKINSON^S DISEASE
     Route: 065
     Dates: start: 20100628

REACTIONS (2)
  - Immobile [Unknown]
  - Dyskinesia [Unknown]
